FAERS Safety Report 25605191 (Version 1)
Quarter: 2025Q3

REPORT INFORMATION
  Report Type: Spontaneous
  Country: EU (occurrence: EU)
  Receive Date: 20250725
  Receipt Date: 20250725
  Transmission Date: 20251021
  Serious: Yes (Hospitalization)
  Sender: ABBVIE
  Company Number: None

PATIENT
  Age: 62 Year

DRUGS (1)
  1. ESCITALOPRAM OXALATE [Suspect]
     Active Substance: ESCITALOPRAM OXALATE
     Indication: Anxiety
     Route: 048

REACTIONS (7)
  - Presyncope [Recovered/Resolved]
  - Malaise [Recovering/Resolving]
  - Agitation [Recovering/Resolving]
  - Language disorder [Recovering/Resolving]
  - Tachycardia [Recovering/Resolving]
  - Vomiting [Recovered/Resolved]
  - Overdose [Unknown]
